FAERS Safety Report 19505157 (Version 1)
Quarter: 2021Q3

REPORT INFORMATION
  Report Type: Spontaneous
  Country: GB (occurrence: GB)
  Receive Date: 20210707
  Receipt Date: 20210707
  Transmission Date: 20211014
  Serious: Yes (Other)
  Sender: FDA-Public Use
  Company Number: GB-ASTRAZENECA-2021A579933

PATIENT
  Age: 89 Year
  Sex: Male

DRUGS (7)
  1. ABASAGLAR SOLUTION FOR INJECTION [Concomitant]
  2. FINASTERIDE. [Concomitant]
     Active Substance: FINASTERIDE
  3. RAMIPRIL. [Concomitant]
     Active Substance: RAMIPRIL
  4. METFORMIN [Concomitant]
     Active Substance: METFORMIN HYDROCHLORIDE
  5. DAPAGLIFLOZIN PROPANEDIOL. [Suspect]
     Active Substance: DAPAGLIFLOZIN PROPANEDIOL
     Dosage: UNKNOWN
     Route: 048
     Dates: end: 20210626
  6. ALOGLIPTIN. [Concomitant]
     Active Substance: ALOGLIPTIN
  7. TRIMBOW [Concomitant]
     Active Substance: BECLOMETHASONE DIPROPIONATE\FORMOTEROL FUMARATE\GLYCOPYRROLATE

REACTIONS (2)
  - Condition aggravated [Unknown]
  - Peripheral arterial occlusive disease [Unknown]
